FAERS Safety Report 7313931-X (Version None)
Quarter: 2011Q1

REPORT INFORMATION
  Report Type: 
  Country: None (occurrence: None)
  Receive Date: 20110225
  Receipt Date: 20110215
  Transmission Date: 20110831
  Serious: Yes (Other)
  Sender: FDA-Public Use
  Company Number: FI-SANOFI-AVENTIS-2011SA009845

PATIENT
  Age: 62 Year
  Sex: Female

DRUGS (10)
  1. BISOPROLOL RATIOPHARM [Concomitant]
     Route: 048
     Dates: start: 20090515
  2. VERAPAMIL [Concomitant]
     Route: 048
     Dates: start: 20090515
  3. MAREVAN FORTE [Concomitant]
     Route: 048
     Dates: start: 20080512
  4. KALEORID [Concomitant]
     Route: 048
  5. MULTAQ [Suspect]
     Indication: ATRIAL FIBRILLATION
     Route: 048
     Dates: start: 20101119, end: 20110201
  6. CANDESARTAN CILEXETIL/HYDROCHLOROTHIAZIDE [Concomitant]
     Dosage: 16 MG/ 2.5 MG TWICE A DAY
     Dates: start: 20071030
  7. BUDESONIDE/FORMOTEROL [Concomitant]
     Dosage: DOSE:1 PUFF(S)
     Route: 055
  8. CETIRIZINE [Concomitant]
     Route: 048
  9. DILTIAZEM HYDROCHLORIDE [Concomitant]
     Route: 048
     Dates: start: 20101008
  10. CALCICHEW-D3 [Concomitant]
     Dosage: 500 MG/ 10 MCG TWICE A DAY
     Route: 048

REACTIONS (4)
  - CHOLESTATIC LIVER INJURY [None]
  - BLOOD ALKALINE PHOSPHATASE INCREASED [None]
  - ALANINE AMINOTRANSFERASE INCREASED [None]
  - GAMMA-GLUTAMYLTRANSFERASE DECREASED [None]
